FAERS Safety Report 5274151-6 (Version None)
Quarter: 2007Q1

REPORT INFORMATION
  Report Type: 
  Country: None (occurrence: None)
  Receive Date: 20070323
  Receipt Date: 20070321
  Transmission Date: 20070707
  Serious: Yes (Hospitalization)
  Sender: FDA-Public Use
  Company Number: RU-SHR-RU-2007-009944

PATIENT
  Age: 24 Year
  Sex: Female

DRUGS (2)
  1. DIANE 35 [Suspect]
     Dosage: 1 TAB(S), UNK
     Route: 048
  2. YARINA (21) [Suspect]
     Indication: ACNE
     Dosage: 1 TAB(S), UNK
     Route: 048

REACTIONS (2)
  - CEREBROVASCULAR DISORDER [None]
  - OPTIC NERVE DISORDER [None]
